FAERS Safety Report 23441024 (Version 1)
Quarter: 2024Q1

REPORT INFORMATION
  Report Type: Spontaneous
  Country: DE (occurrence: DE)
  Receive Date: 20240125
  Receipt Date: 20240125
  Transmission Date: 20240410
  Serious: Yes (Other)
  Sender: FDA-Public Use
  Company Number: DE-SUNPHARMA-2024RR-428660AA

PATIENT
  Age: 65 Year
  Sex: Male
  Weight: 117 kg

DRUGS (2)
  1. LENALIDOMIDE [Suspect]
     Active Substance: LENALIDOMIDE
     Indication: Plasma cell myeloma
     Dosage: INITIAL 25MG THEN 10MG/D
     Route: 048
     Dates: start: 20180808, end: 20230906
  2. MELPHALAN [Concomitant]
     Active Substance: MELPHALAN
     Indication: Plasma cell myeloma
     Dosage: 2X HIGH DOSE CHEMOTHERAPY
     Route: 065
     Dates: start: 201808, end: 202309

REACTIONS (1)
  - Acute myeloid leukaemia [Not Recovered/Not Resolved]

NARRATIVE: CASE EVENT DATE: 20230907
